FAERS Safety Report 6544669-4 (Version None)
Quarter: 2010Q1

REPORT INFORMATION
  Report Type: 
  Country: None (occurrence: None)
  Receive Date: 20100120
  Receipt Date: 20100120
  Transmission Date: 20100710
  Serious: No
  Sender: FDA-Public Use
  Company Number: None

PATIENT
  Age: 60 Year
  Sex: Male
  Weight: 81.6475 kg

DRUGS (2)
  1. INTRON A [Suspect]
     Dates: start: 20090915, end: 20091015
  2. INTRON A [Suspect]
     Dates: start: 20091016, end: 20091106

REACTIONS (3)
  - OPTIC ISCHAEMIC NEUROPATHY [None]
  - POOR QUALITY DRUG ADMINISTERED [None]
  - PRODUCT QUALITY ISSUE [None]
